FAERS Safety Report 4809157-1 (Version None)
Quarter: 2005Q4

REPORT INFORMATION
  Report Type: 
  Country: None (occurrence: None)
  Receive Date: 20051021
  Receipt Date: 20030227
  Transmission Date: 20060501
  Serious: Yes (Hospitalization)
  Sender: FDA-Public Use
  Company Number: EWC030334057

PATIENT
  Age: 35 Year
  Sex: Female
  Weight: 45 kg

DRUGS (3)
  1. ZYPREXA [Suspect]
     Indication: SCHIZOPHRENIA
     Dosage: 20 MG/DAY
     Dates: start: 20030223, end: 20030224
  2. VALIUM [Concomitant]
  3. TARIVID (OFLOXACIN) [Concomitant]

REACTIONS (3)
  - ALCOHOL POISONING [None]
  - BONE MARROW DISORDER [None]
  - PANCYTOPENIA [None]
